FAERS Safety Report 9514108 (Version 1)
Quarter: 2013Q3

REPORT INFORMATION
  Report Type: Spontaneous
  Country: US (occurrence: US)
  Receive Date: 20130910
  Receipt Date: 20130910
  Transmission Date: 20140515
  Serious: Yes (Other)
  Sender: FDA-Public Use
  Company Number: US-B.I. PHARMACEUTICALS,INC./RIDGEFIELD-2013-BI-27529BP

PATIENT
  Sex: Female

DRUGS (1)
  1. MICARDIS [Suspect]
     Dosage: 80 MG
     Route: 048
     Dates: start: 201008

REACTIONS (2)
  - Joint injury [Unknown]
  - Fall [Recovered/Resolved]
